FAERS Safety Report 25219698 (Version 1)
Quarter: 2025Q2

REPORT INFORMATION
  Report Type: Spontaneous
  Country: CA (occurrence: CA)
  Receive Date: 20250421
  Receipt Date: 20250421
  Transmission Date: 20250716
  Serious: Yes (Hospitalization, Disabling)
  Sender: ACCORD
  Company Number: None

PATIENT
  Age: 75 Year
  Sex: Female

DRUGS (11)
  1. LACOSAMIDE [Suspect]
     Active Substance: LACOSAMIDE
     Indication: Partial seizures
     Route: 048
  2. CLOBAZAM [Concomitant]
     Active Substance: CLOBAZAM
  3. LANTUS [Concomitant]
     Active Substance: INSULIN GLARGINE
     Route: 058
  4. LATANOPROST [Concomitant]
     Active Substance: LATANOPROST
  5. LEVETIRACETAM [Concomitant]
     Active Substance: LEVETIRACETAM
  6. METFORMIN [Concomitant]
     Active Substance: METFORMIN HYDROCHLORIDE
  7. METOPROLOL [Concomitant]
     Active Substance: METOPROLOL
  8. FERROUS FUMARATE [Concomitant]
     Active Substance: FERROUS FUMARATE
  9. PRAVASTATIN SODIUM [Concomitant]
     Active Substance: PRAVASTATIN SODIUM
  10. SENNOSIDES [Concomitant]
     Active Substance: SENNOSIDES
  11. INSULIN ASPART [Concomitant]
     Active Substance: INSULIN ASPART

REACTIONS (5)
  - Drooling [Recovering/Resolving]
  - Muscular weakness [Recovering/Resolving]
  - Lethargy [Recovering/Resolving]
  - Dysphonia [Recovering/Resolving]
  - Asthenia [Recovering/Resolving]
